FAERS Safety Report 13745745 (Version 1)
Quarter: 2017Q3

REPORT INFORMATION
  Report Type: Spontaneous
  Country: US (occurrence: US)
  Receive Date: 20170712
  Receipt Date: 20170712
  Transmission Date: 20171127
  Serious: Yes (Life-Threatening, Other)
  Sender: FDA-Public Use
  Company Number: PHEH2017US021216

PATIENT
  Age: 60 Year
  Sex: Male

DRUGS (1)
  1. ENTRESTO [Suspect]
     Active Substance: SACUBITRIL\VALSARTAN
     Indication: CARDIAC FAILURE CONGESTIVE
     Dosage: 50 MG, BID
     Route: 065
     Dates: start: 20170701

REACTIONS (3)
  - Ventricular fibrillation [Recovered/Resolved with Sequelae]
  - Syncope [Unknown]
  - Device malfunction [Unknown]

NARRATIVE: CASE EVENT DATE: 20170704
